FAERS Safety Report 4606634-3 (Version None)
Quarter: 2005Q2

REPORT INFORMATION
  Report Type: 
  Country: None (occurrence: None)
  Receive Date: 20050223
  Receipt Date: 20040401
  Transmission Date: 20051028
  Serious: Yes (Disabling)
  Sender: FDA-Public Use
  Company Number: WAES 0404USA00160

PATIENT
  Age: 86 Year
  Sex: Female

DRUGS (3)
  1. ZOCOR [Suspect]
     Indication: BLOOD CHOLESTEROL INCREASED
     Dosage: 1 TABLET/DAILY/PO
     Route: 048
  2. ZOLOFT [Concomitant]
  3. THYROID TAB [Concomitant]

REACTIONS (1)
  - MUSCLE SPASMS [None]
